FAERS Safety Report 8859183 (Version 2)
Quarter: 2012Q4

REPORT INFORMATION
  Report Type: 
  Country: US (occurrence: US)
  Receive Date: 20121024
  Receipt Date: 20121226
  Transmission Date: 20130627
  Serious: No
  Sender: FDA-Public Use
  Company Number: US-PFIZER INC-2012262130

PATIENT
  Age: 32 Year
  Sex: Female
  Weight: 145 kg

DRUGS (2)
  1. PROTONIX [Suspect]
     Indication: HEARTBURN
     Dosage: 30 mg, 2x/day
     Dates: end: 201210
  2. PROTONIX [Suspect]
     Indication: ACID REFLUX (ESOPHAGEAL)

REACTIONS (1)
  - Glycosylated haemoglobin increased [Unknown]
